FAERS Safety Report 9541308 (Version 3)
Quarter: 2013Q4

REPORT INFORMATION
  Report Type: Spontaneous
  Country: PL (occurrence: PL)
  Receive Date: 20130923
  Receipt Date: 20131216
  Transmission Date: 20140711
  Serious: Yes (Hospitalization, Other)
  Sender: FDA-Public Use
  Company Number: PL-AMGEN-POLSP2013065164

PATIENT
  Age: 64 Year
  Sex: Female
  Weight: 49 kg

DRUGS (14)
  1. ARANESP [Suspect]
     Indication: ANAEMIA
     Dosage: 10 MUG, QWK
     Route: 058
     Dates: start: 20130703, end: 20130710
  2. LORISTA [Concomitant]
     Indication: HYPERTENSION
     Dosage: 50 MG, QD
     Route: 048
     Dates: start: 20120727
  3. BETALOC                            /00376902/ [Concomitant]
     Indication: HYPERTENSION
     Dosage: 50 MG, QD
     Route: 048
     Dates: start: 20120727
  4. INSULIN [Concomitant]
     Indication: DIABETES MELLITUS
     Dosage: MIX 50, MIX 30
     Route: 058
     Dates: start: 20120727
  5. HELICID                            /00661201/ [Concomitant]
     Dosage: 20 MG, QD
     Route: 048
     Dates: start: 20120727, end: 20130716
  6. FUROSEMIDE [Concomitant]
     Indication: RENAL FAILURE
     Dosage: 80 MG, BID
     Route: 048
     Dates: start: 20120727
  7. DIUVER [Concomitant]
     Dosage: 5 UNK, QD
  8. KALIPOZ PROLONGATE [Concomitant]
     Dosage: UNK UNK, QD
  9. HYDROXYZINE [Concomitant]
     Dosage: 25 UNK, BID
  10. CLEMASTIN [Concomitant]
  11. CORHYDRON                          /00028601/ [Concomitant]
  12. NACL [Concomitant]
     Dosage: 0.9 %, UNK
  13. LENDACIN [Concomitant]
  14. CIPRONEX                           /00697201/ [Concomitant]

REACTIONS (2)
  - Dermatitis allergic [Recovered/Resolved]
  - Ovarian neoplasm [Unknown]
